FAERS Safety Report 8521369-2 (Version None)
Quarter: 2012Q3

REPORT INFORMATION
  Report Type: 
  Country: None (occurrence: None)
  Receive Date: 20120719
  Receipt Date: 20120710
  Transmission Date: 20120928
  Serious: No
  Sender: FDA-Public Use
  Company Number: US-ASTRAZENECA-2012SE40883

PATIENT
  Age: 53 Year
  Sex: Female
  Weight: 74.8 kg

DRUGS (4)
  1. ZANTAC [Concomitant]
  2. LYRICA [Concomitant]
  3. SEROQUEL [Suspect]
     Indication: SLEEP DISORDER
     Route: 048
  4. HEART PILL [Concomitant]

REACTIONS (7)
  - BACK DISORDER [None]
  - ARTHRITIS [None]
  - INTERVERTEBRAL DISC DEGENERATION [None]
  - OFF LABEL USE [None]
  - INSOMNIA [None]
  - LIMB DISCOMFORT [None]
  - DRUG DOSE OMISSION [None]
